FAERS Safety Report 6466137-0 (Version None)
Quarter: 2009Q4

REPORT INFORMATION
  Report Type: 
  Country: None (occurrence: None)
  Receive Date: 20091201
  Receipt Date: 20091201
  Transmission Date: 20100525
  Serious: Yes (Other)
  Sender: FDA-Public Use
  Company Number: None

PATIENT
  Age: 47 Year
  Sex: Female
  Weight: 90.7194 kg

DRUGS (1)
  1. SULFAMETHOXAZOLE AND TRIMETHOPRIM DOUBLE STRENGTH [Suspect]
     Indication: SINUSITIS
     Dosage: 1 PILL 2 TIMES PER DAY PO
     Route: 048
     Dates: start: 20091120, end: 20091128

REACTIONS (2)
  - DRUG HYPERSENSITIVITY [None]
  - PAIN [None]
